FAERS Safety Report 5223673-2 (Version None)
Quarter: 2007Q1

REPORT INFORMATION
  Report Type: 
  Country: None (occurrence: None)
  Receive Date: 20070125
  Receipt Date: 20070117
  Transmission Date: 20070707
  Serious: Yes (Disabling, Other)
  Sender: FDA-Public Use
  Company Number: PHFR2006GB03389

PATIENT
  Sex: Male

DRUGS (3)
  1. TIMOLOL MALEATE [Suspect]
     Dosage: 1 DROP, TWICE A DAY INTO THE LEFT EYE, OPTHTALMIC
     Route: 047
  2. DEXAMETHASONE [Suspect]
     Dosage: 1 DROP, SIX TIMES A DAY INTO THE LEFT EYE, OPHTHALMIC
     Route: 047
  3. CYCLOSPORINE [Concomitant]

REACTIONS (2)
  - CORNEAL DEPOSITS [None]
  - VISUAL ACUITY REDUCED [None]
